FAERS Safety Report 20156976 (Version 12)
Quarter: 2022Q3

REPORT INFORMATION
  Report Type: Report from Study
  Country: CN (occurrence: None)
  Receive Date: 20211207
  Receipt Date: 20220929
  Transmission Date: 20221026
  Serious: Yes (Hospitalization)
  Sender: FDA-Public Use
  Company Number: CN-ROCHE-2971296

PATIENT
  Age: 62 Year
  Sex: Female
  Weight: 55 kg

DRUGS (16)
  1. ATEZOLIZUMAB [Suspect]
     Active Substance: ATEZOLIZUMAB
     Indication: Breast cancer metastatic
     Dosage: ON 30/NOV/2021, RECEIVED MOST RECENT DOSE.? DOSE LAST STUDY DRUG ADMIN PRIOR AE/SAE: 1200 MG
     Route: 041
     Dates: start: 20211125
  2. ATEZOLIZUMAB [Suspect]
     Active Substance: ATEZOLIZUMAB
     Indication: Breast cancer metastatic
     Dosage: ON 25/NOV/2021, LAST DOSE WAS ADMINISTERED PRIOR TO AE.
     Route: 065
     Dates: start: 20211125
  3. ADO-TRASTUZUMAB EMTANSINE [Suspect]
     Active Substance: ADO-TRASTUZUMAB EMTANSINE
     Indication: Breast cancer metastatic
     Dosage: ON DAY 1 OF EACH 21-DAY CYCLE (AS PER PROTOCOL)?ON 25/NOV/2021,SHE RECEIVED MOST RECENT DOSE (198 M
     Route: 042
     Dates: start: 20211125
  4. GLYCERINE ENEMA [Concomitant]
     Indication: Constipation
     Route: 054
     Dates: start: 20211128, end: 20211128
  5. PROMETHAZINE [Concomitant]
     Active Substance: PROMETHAZINE HYDROCHLORIDE
     Indication: Vomiting
     Route: 030
     Dates: start: 20211129, end: 20211129
  6. DICLOFENAC SODIUM [Concomitant]
     Active Substance: DICLOFENAC SODIUM
     Indication: Pyrexia
     Route: 054
     Dates: start: 20211129, end: 20211129
  7. PHENETHYLAMINE [Concomitant]
     Active Substance: PHENETHYLAMINE
     Indication: Haemostasis
     Route: 042
     Dates: start: 20211202, end: 20211202
  8. PHENETHYLAMINE [Concomitant]
     Active Substance: PHENETHYLAMINE
     Route: 042
     Dates: start: 20211202, end: 20211203
  9. HAEMOCOAGULASE AGKISTRODON [Concomitant]
     Indication: Haemostasis
     Route: 042
     Dates: start: 20211202, end: 20211203
  10. HEPATOCYTE GROWTH PROMOTING FACTOR [Concomitant]
     Route: 042
     Dates: start: 20211127, end: 20211208
  11. GLUTATHIONE [Concomitant]
     Active Substance: GLUTATHIONE
     Route: 042
     Dates: start: 20211128, end: 20211208
  12. BICYCLOL [Concomitant]
     Active Substance: BICYCLOL
     Route: 048
     Dates: start: 20211130, end: 20211201
  13. AMINOMETHYLBENZOIC ACID [Concomitant]
     Active Substance: AMINOMETHYLBENZOIC ACID
     Indication: Haemostasis
     Route: 042
     Dates: start: 20211202, end: 20211203
  14. PEGYLATED RECOMBINANT HUMAN GRANULOCYTE COLONY STIMULATING FACTOR [Concomitant]
     Route: 058
     Dates: start: 20211127, end: 20211127
  15. TROPISETRON HYDROCHLORIDE [Concomitant]
     Active Substance: TROPISETRON HYDROCHLORIDE
     Route: 042
     Dates: start: 20211125, end: 20211125
  16. ETHAMSYLATE [Concomitant]
     Active Substance: ETHAMSYLATE
     Route: 042
     Dates: start: 20211202, end: 20211203

REACTIONS (2)
  - Hepatic function abnormal [Recovered/Resolved]
  - Platelet count decreased [Recovered/Resolved]

NARRATIVE: CASE EVENT DATE: 20211127
